FAERS Safety Report 12968769 (Version 1)
Quarter: 2016Q4

REPORT INFORMATION
  Report Type: Spontaneous
  Country: US (occurrence: US)
  Receive Date: 20161121
  Receipt Date: 20161121
  Transmission Date: 20170207
  Serious: Yes (Other)
  Sender: FDA-Public Use
  Company Number: None

PATIENT
  Age: 56 Year
  Sex: Female
  Weight: 88.53 kg

DRUGS (1)
  1. REMICADE [Suspect]
     Active Substance: INFLIXIMAB
     Indication: CROHN^S DISEASE
     Dosage: REMICADE 5MG/KG 0, 2, + 6 WEEKS, THEN EVERY 8 IV
     Route: 042
     Dates: start: 20161004, end: 20161004

REACTIONS (6)
  - Flushing [None]
  - Hypotension [None]
  - Pruritus [None]
  - Erythema [None]
  - Nausea [None]
  - Dyspepsia [None]

NARRATIVE: CASE EVENT DATE: 20161004
